FAERS Safety Report 8309101-9 (Version None)
Quarter: 2012Q2

REPORT INFORMATION
  Report Type: 
  Country: None (occurrence: None)
  Receive Date: 20120424
  Receipt Date: 20120420
  Transmission Date: 20120825
  Serious: Yes (Hospitalization, Other)
  Sender: FDA-Public Use
  Company Number: US-PFIZER INC-2012098498

PATIENT
  Sex: Female
  Weight: 59.9 kg

DRUGS (3)
  1. PROZAC [Concomitant]
     Indication: BIPOLAR DISORDER
     Dosage: 60 MG, 1X/DAY
  2. SEROQUEL [Concomitant]
     Indication: BIPOLAR DISORDER
     Dosage: UNK
  3. NEURONTIN [Suspect]
     Indication: NEURALGIA
     Dosage: 400 MG, 2X/DAY
     Route: 048
     Dates: start: 20111201

REACTIONS (5)
  - HEADACHE [None]
  - VOMITING [None]
  - DELUSIONAL PERCEPTION [None]
  - MIGRAINE [None]
  - PSYCHOTIC DISORDER [None]
